FAERS Safety Report 6657961-X (Version None)
Quarter: 2010Q1

REPORT INFORMATION
  Report Type: 
  Country: None (occurrence: None)
  Receive Date: 20100330
  Receipt Date: 20100322
  Transmission Date: 20100710
  Serious: Yes (Other)
  Sender: FDA-Public Use
  Company Number: DE-ROCHE-693500

PATIENT

DRUGS (1)
  1. BEVACIZUMAB [Suspect]
     Indication: RECTAL CANCER
     Route: 065

REACTIONS (3)
  - ANASTOMOTIC COMPLICATION [None]
  - GASTROINTESTINAL HYPOMOTILITY [None]
  - PERITONITIS [None]
